FAERS Safety Report 23974217 (Version 2)
Quarter: 2024Q2

REPORT INFORMATION
  Report Type: Spontaneous
  Country: US (occurrence: US)
  Receive Date: 20240614
  Receipt Date: 20240624
  Transmission Date: 20240715
  Serious: No
  Sender: FDA-Public Use
  Company Number: US-TEVA-VS-3207031

PATIENT
  Age: 71 Year
  Sex: Male
  Weight: 45.36 kg

DRUGS (2)
  1. ALBUTEROL SULFATE [Suspect]
     Active Substance: ALBUTEROL SULFATE
     Indication: Pseudomonal sepsis
     Route: 065
  2. TOBRAMYCIN [Concomitant]
     Active Substance: TOBRAMYCIN\TOBRAMYCIN SULFATE

REACTIONS (6)
  - Off label use [Unknown]
  - Drug ineffective [Unknown]
  - Product dispensing issue [Unknown]
  - Malaise [Unknown]
  - Dyspnoea [Unknown]
  - Drug hypersensitivity [Unknown]
